FAERS Safety Report 9540685 (Version 1)
Quarter: 2013Q3

REPORT INFORMATION
  Report Type: Report from Study
  Country: CO (occurrence: CO)
  Receive Date: 20130920
  Receipt Date: 20130920
  Transmission Date: 20140515
  Serious: Yes (Other)
  Sender: FDA-Public Use
  Company Number: CO-US-EMD SERONO, INC.-7237057

PATIENT
  Sex: Male
  Weight: 43 kg

DRUGS (1)
  1. SAIZEN [Suspect]
     Indication: BODY HEIGHT BELOW NORMAL
     Dosage: 8MG/24UNITS
     Route: 058
     Dates: start: 20110127, end: 20130901

REACTIONS (2)
  - Cerebral infarction [Unknown]
  - Adrenocortical insufficiency acute [Unknown]
